FAERS Safety Report 19092233 (Version 1)
Quarter: 2021Q2

REPORT INFORMATION
  Report Type: Spontaneous
  Country: US (occurrence: US)
  Receive Date: 20210405
  Receipt Date: 20210405
  Transmission Date: 20210717
  Serious: No
  Sender: FDA-Public Use
  Company Number: US-TEVA-2021-US-1888675

PATIENT
  Age: 66 Year
  Sex: Female

DRUGS (1)
  1. BETAMETHASONE DIPROPIONATE\CLOTRIMAZOLE [Suspect]
     Active Substance: BETAMETHASONE DIPROPIONATE\CLOTRIMAZOLE
     Dosage: %1/0.05 BASE, APPLY IN AREA TWICE A DAY
     Route: 061
     Dates: start: 20210224

REACTIONS (1)
  - Vulvovaginal rash [Unknown]
